FAERS Safety Report 5094138-6 (Version None)
Quarter: 2006Q3

REPORT INFORMATION
  Report Type: 
  Country: None (occurrence: None)
  Receive Date: 20060831
  Receipt Date: 20051213
  Transmission Date: 20061208
  Serious: Yes (Other)
  Sender: FDA-Public Use
  Company Number: PHEH2005US13440

PATIENT
  Age: 46 Year
  Sex: Female

DRUGS (2)
  1. AREDIA [Suspect]
     Dosage: UNK, UNK
  2. ZOMETA [Suspect]

REACTIONS (7)
  - ANHEDONIA [None]
  - ANXIETY [None]
  - DECREASED INTEREST [None]
  - GENERAL PHYSICAL HEALTH DETERIORATION [None]
  - OSTEONECROSIS [None]
  - PAIN [None]
  - POLYTRAUMATISM [None]
